FAERS Safety Report 25720616 (Version 1)
Quarter: 2025Q3

REPORT INFORMATION
  Report Type: Spontaneous
  Country: US (occurrence: US)
  Receive Date: 20250825
  Receipt Date: 20250825
  Transmission Date: 20251021
  Serious: No
  Sender: AUROBINDO
  Company Number: US-AUROBINDO-AUR-APL-2024-049604

PATIENT
  Age: 67 Year
  Sex: Male
  Weight: 88.4 kg

DRUGS (4)
  1. METHENAMINE HIPPURATE [Suspect]
     Active Substance: METHENAMINE HIPPURATE
     Indication: Prophylaxis
     Route: 048
  2. METHENAMINE HIPPURATE [Suspect]
     Active Substance: METHENAMINE HIPPURATE
     Indication: Cystitis
  3. DEMANNOSE [Concomitant]
     Active Substance: DEMANNOSE
     Indication: Multi-vitamin deficiency
     Route: 065
  4. LISINOPRIL [Concomitant]
     Active Substance: LISINOPRIL
     Indication: Blood pressure measurement
     Route: 065

REACTIONS (5)
  - Flatulence [Unknown]
  - Sputum increased [Unknown]
  - Product taste abnormal [Unknown]
  - Product physical issue [Unknown]
  - Product solubility abnormal [Unknown]
